FAERS Safety Report 7018784-5 (Version None)
Quarter: 2010Q3

REPORT INFORMATION
  Report Type: 
  Country: None (occurrence: None)
  Receive Date: 20100928
  Receipt Date: 20100923
  Transmission Date: 20110219
  Serious: Yes (Death, Hospitalization)
  Sender: FDA-Public Use
  Company Number: PHHY2010IT61228

PATIENT
  Sex: Male

DRUGS (2)
  1. TOLEP [Suspect]
     Indication: POST-TRAUMATIC EPILEPSY
     Dosage: 900 MG DAILY
     Route: 048
     Dates: start: 20090101, end: 20100721
  2. EUTIROX [Concomitant]
     Dosage: 1 DF, QD
     Route: 048

REACTIONS (3)
  - DEATH [None]
  - HAEMOGLOBIN DECREASED [None]
  - HYPONATRAEMIA [None]
